FAERS Safety Report 11319702 (Version 1)
Quarter: 2015Q3

REPORT INFORMATION
  Report Type: Spontaneous
  Country: US (occurrence: None)
  Receive Date: 20150728
  Receipt Date: 20150728
  Transmission Date: 20151125
  Serious: No
  Sender: FDA-Public Use
  Company Number: None

PATIENT
  Age: 39 Year
  Sex: Female

DRUGS (5)
  1. FAMOTIDINE (PEPCID) [Concomitant]
  2. ZANAFLEX [Concomitant]
     Active Substance: TIZANIDINE HYDROCHLORIDE
  3. AMPYRA [Suspect]
     Active Substance: DALFAMPRIDINE
     Indication: MULTIPLE SCLEROSIS
     Route: 048
     Dates: start: 201103
  4. LIORESAL [Concomitant]
     Active Substance: BACLOFEN
  5. DEXTROAMPHETAMINE (ZENZEDI) [Concomitant]

REACTIONS (1)
  - No adverse event [None]

NARRATIVE: CASE EVENT DATE: 20150629
